FAERS Safety Report 17185802 (Version 2)
Quarter: 2020Q1

REPORT INFORMATION
  Report Type: Spontaneous
  Country: US (occurrence: US)
  Receive Date: 20191220
  Receipt Date: 20200110
  Transmission Date: 20200409
  Serious: Yes (Other)
  Sender: FDA-Public Use
  Company Number: US-GLENMARK PHARMACEUTICALS-2019GMK044910

PATIENT

DRUGS (2)
  1. HYDROCORTISONE VALERATE OINTMENT USP, 0.2% [Suspect]
     Active Substance: HYDROCORTISONE
     Indication: FUNGAL SKIN INFECTION
  2. HYDROCORTISONE VALERATE OINTMENT USP, 0.2% [Suspect]
     Active Substance: HYDROCORTISONE
     Indication: GASTROINTESTINAL FUNGAL INFECTION
     Dosage: UNK; ROUTE: INSIDE AND OUTSIDE COLON AND RECTUM
     Route: 050
     Dates: start: 20191121, end: 201911

REACTIONS (7)
  - Product use in unapproved indication [Unknown]
  - Expired product administered [Unknown]
  - Fungal skin infection [Recovering/Resolving]
  - Condition aggravated [Recovering/Resolving]
  - Incorrect route of product administration [Unknown]
  - Therapy cessation [Unknown]
  - Gastrointestinal fungal infection [Recovering/Resolving]

NARRATIVE: CASE EVENT DATE: 201911
